FAERS Safety Report 7706748-5 (Version None)
Quarter: 2011Q3

REPORT INFORMATION
  Report Type: 
  Country: None (occurrence: None)
  Receive Date: 20110818
  Receipt Date: 20110805
  Transmission Date: 20111222
  Serious: Yes (Hospitalization)
  Sender: FDA-Public Use
  Company Number: GB-1185916

PATIENT
  Age: 64 Year
  Sex: Male

DRUGS (4)
  1. LUMIGAN [Concomitant]
  2. SOTALOL HCL [Concomitant]
  3. AZOPT [Suspect]
     Dosage: (1 GTT BID OS OPHTHALMIC)
     Route: 047
     Dates: start: 20100306, end: 20110224
  4. WARFARIN SODIUM [Concomitant]

REACTIONS (8)
  - RASH [None]
  - FEELING COLD [None]
  - OEDEMA PERIPHERAL [None]
  - FATIGUE [None]
  - DYSPNOEA [None]
  - ERYTHEMA [None]
  - JOINT SWELLING [None]
  - SCROTAL OEDEMA [None]
